FAERS Safety Report 9973638 (Version 5)
Quarter: 2014Q3

REPORT INFORMATION
  Report Type: Spontaneous
  Country: JP (occurrence: JP)
  Receive Date: 20140306
  Receipt Date: 20140916
  Transmission Date: 20150326
  Serious: Yes (Other)
  Sender: FDA-Public Use
  Company Number: PHHY2014JP025109

PATIENT
  Sex: Female
  Weight: .87 kg

DRUGS (6)
  1. PERDIPINE [Concomitant]
     Active Substance: NICARDIPINE HYDROCHLORIDE
     Dates: start: 20110129, end: 20110131
  2. LEVOMEPROMAZINE [Suspect]
     Active Substance: LEVOMEPROMAZINE
     Route: 064
  3. APRESOLINE HYDROCHLORIDE [Suspect]
     Active Substance: HYDRALAZINE HYDROCHLORIDE
     Dosage: MATERNAL DOSE: 120 MG
     Route: 064
     Dates: start: 20110125, end: 20110129
  4. FLUNITRAZEPAM [Suspect]
     Active Substance: FLUNITRAZEPAM
     Route: 064
  5. MAGNESOL [Concomitant]
     Dates: start: 20110129, end: 20110201
  6. ALDOMET [Suspect]
     Active Substance: METHYLDOPA
     Dosage: MATERNAL DOSE: 750 MG
     Route: 064
     Dates: start: 20110125, end: 20110129

REACTIONS (5)
  - Low birth weight baby [Unknown]
  - Apgar score low [Unknown]
  - Premature baby [Unknown]
  - Foetal exposure during pregnancy [Unknown]
  - Foetal growth restriction [Unknown]
